FAERS Safety Report 6356543-7 (Version None)
Quarter: 2009Q3

REPORT INFORMATION
  Report Type: 
  Country: None (occurrence: None)
  Receive Date: 20090911
  Receipt Date: 20090911
  Transmission Date: 20100115
  Serious: No
  Sender: FDA-Public Use
  Company Number: None

PATIENT
  Age: 49 Year
  Sex: Male
  Weight: 113.3993 kg

DRUGS (2)
  1. MEFLOQUINE HCL [Suspect]
     Indication: MALARIA
     Dosage: 1 WHITE PILL 50 PULSE PO YES
     Route: 048
     Dates: start: 19850801, end: 19900205
  2. LARIAM [Suspect]
     Dosage: YES
     Dates: start: 19850801, end: 19900205

REACTIONS (8)
  - AFFECTIVE DISORDER [None]
  - ARTHRALGIA [None]
  - DIZZINESS [None]
  - HEADACHE [None]
  - INSOMNIA [None]
  - PHOTOSENSITIVITY REACTION [None]
  - POST-TRAUMATIC STRESS DISORDER [None]
  - TINNITUS [None]
